FAERS Safety Report 5079714-9 (Version None)
Quarter: 2006Q3

REPORT INFORMATION
  Report Type: 
  Country: None (occurrence: None)
  Receive Date: 20060808
  Receipt Date: 20060720
  Transmission Date: 20061208
  Serious: Yes (Hospitalization)
  Sender: FDA-Public Use
  Company Number: US200607004309

PATIENT
  Age: 54 Year
  Sex: Male
  Weight: 113.8 kg

DRUGS (1)
  1. ZYPREXA [Suspect]
     Indication: STRESS
     Dosage: ORAL
     Route: 048
     Dates: start: 19980101, end: 20010101

REACTIONS (2)
  - DIABETES MELLITUS [None]
  - MYOCARDIAL INFARCTION [None]
